FAERS Safety Report 9379461 (Version 4)
Quarter: 2013Q3

REPORT INFORMATION
  Report Type: Report from Study
  Country: CA (occurrence: CA)
  Receive Date: 20130702
  Receipt Date: 20130816
  Transmission Date: 20140515
  Serious: Yes (Hospitalization)
  Sender: FDA-Public Use
  Company Number: CA-BAYER-2013-071654

PATIENT
  Age: 53 Year
  Sex: Female

DRUGS (3)
  1. STIVARGA [Suspect]
     Indication: COLORECTAL CANCER METASTATIC
     Dosage: 160 MG, QD
     Route: 048
     Dates: start: 20130606
  2. STIVARGA [Suspect]
     Indication: COLORECTAL CANCER METASTATIC
     Dosage: 120 MG, QD
     Route: 048
     Dates: start: 20130704
  3. HYDROCHLOROTHIAZIDE [Concomitant]
     Dosage: 25MG

REACTIONS (11)
  - Gait disturbance [None]
  - Hepatic enzyme increased [None]
  - Pyrexia [None]
  - Dysphonia [None]
  - Nasopharyngitis [None]
  - Rash [Not Recovered/Not Resolved]
  - Constipation [None]
  - Dyspnoea [None]
  - Diarrhoea [None]
  - Mucosal inflammation [Not Recovered/Not Resolved]
  - Blood potassium decreased [None]
